FAERS Safety Report 9958828 (Version 1)
Quarter: 2014Q1

REPORT INFORMATION
  Report Type: Spontaneous
  Country: AU (occurrence: None)
  Receive Date: 20140228
  Receipt Date: 20140228
  Transmission Date: 20141002
  Serious: Yes (Disabling, Other)
  Sender: FDA-Public Use
  Company Number: AUR-APL-2014-02199

PATIENT
  Age: 17 Year
  Sex: Female

DRUGS (1)
  1. QUETIAPINE (QUETIAPINE) [Suspect]
     Indication: SCHIZOPHRENIA

REACTIONS (2)
  - Tardive dyskinesia [None]
  - Drug effect incomplete [None]
